FAERS Safety Report 6447640-6 (Version None)
Quarter: 2009Q4

REPORT INFORMATION
  Report Type: 
  Country: None (occurrence: None)
  Receive Date: 20091119
  Receipt Date: 20090901
  Transmission Date: 20100525
  Serious: No
  Sender: FDA-Public Use
  Company Number: US-ALLERGAN-0912202US

PATIENT
  Sex: Male

DRUGS (3)
  1. ACZONE [Suspect]
     Indication: ACNE
     Dosage: UNK
     Route: 061
     Dates: start: 20090822
  2. TAZORAC [Suspect]
     Indication: ACNE
     Dosage: UNK
     Route: 061
     Dates: start: 20090822
  3. SYNTHROID [Concomitant]

REACTIONS (6)
  - DRY SKIN [None]
  - ERYTHEMA [None]
  - INCORRECT DOSE ADMINISTERED [None]
  - INFLAMMATION [None]
  - PRURITUS [None]
  - SKIN BURNING SENSATION [None]
